FAERS Safety Report 5146943-5 (Version None)
Quarter: 2006Q4

REPORT INFORMATION
  Report Type: 
  Country: None (occurrence: None)
  Receive Date: 20060914
  Receipt Date: 20060616
  Transmission Date: 20070319
  Serious: Yes (Other)
  Sender: FDA-Public Use
  Company Number: PHEH2006US07931

PATIENT
  Age: 64 Year
  Sex: Female

DRUGS (3)
  1. DIOVAN [Suspect]
     Indication: HYPERTENSION
     Dosage: 160 MG , QD, ORAL
     Route: 048
  2. ATENOLOL [Concomitant]
  3. PLAVIX [Concomitant]

REACTIONS (1)
  - BLOOD PRESSURE INCREASED [None]
